FAERS Safety Report 5359610-X (Version None)
Quarter: 2007Q2

REPORT INFORMATION
  Report Type: 
  Country: None (occurrence: None)
  Receive Date: 20070615
  Receipt Date: 20070605
  Transmission Date: 20071010
  Serious: Yes (Other)
  Sender: FDA-Public Use
  Company Number: US-SHR-US-2006-021215

PATIENT

DRUGS (3)
  1. MAGNEVIST [Suspect]
     Dosage: UNK, 1 DOSE
  2. OMNISCAN [Suspect]
  3. CONTRAST MEDIA [Suspect]

REACTIONS (1)
  - NEPHROGENIC FIBROSING DERMOPATHY [None]
